FAERS Safety Report 10879087 (Version 1)
Quarter: 2015Q1

REPORT INFORMATION
  Report Type: Spontaneous
  Country: US (occurrence: US)
  Receive Date: 20150302
  Receipt Date: 20150302
  Transmission Date: 20150721
  Serious: No
  Sender: FDA-Public Use
  Company Number: US-GLAXOSMITHKLINE-US2015011263

PATIENT
  Age: 83 Year
  Sex: Female

DRUGS (1)
  1. ONDANSETRON HYDROCHLORIDE ORODISPERSIBLE TABLET [Suspect]
     Active Substance: ONDANSETRON HYDROCHLORIDE
     Indication: PRODUCT USED FOR UNKNOWN INDICATION
     Dosage: 4 MG, U

REACTIONS (1)
  - Therapeutic response unexpected [Unknown]
